FAERS Safety Report 5398579-9 (Version None)
Quarter: 2007Q3

REPORT INFORMATION
  Report Type: 
  Country: None (occurrence: None)
  Receive Date: 20070726
  Receipt Date: 20061018
  Transmission Date: 20080115
  Serious: No
  Sender: FDA-Public Use
  Company Number: US-AMGEN-KDL197696

PATIENT
  Sex: Female
  Weight: 45.4 kg

DRUGS (4)
  1. PROCRIT [Suspect]
     Indication: RENAL FAILURE CHRONIC
     Dates: start: 19950101
  2. NEXIUM [Concomitant]
  3. ESTRADIOL [Concomitant]
  4. THYROID TAB [Concomitant]

REACTIONS (4)
  - DYSPNOEA [None]
  - HEADACHE [None]
  - MALAISE [None]
  - NAUSEA [None]
